FAERS Safety Report 19498557 (Version 4)
Quarter: 2022Q1

REPORT INFORMATION
  Report Type: Report from Study
  Country: ES (occurrence: ES)
  Receive Date: 20210706
  Receipt Date: 20220302
  Transmission Date: 20220423
  Serious: Yes (Life-Threatening, Hospitalization)
  Sender: FDA-Public Use
  Company Number: ES-JNJFOC-20210661051

PATIENT
  Age: 42 Year
  Sex: Female
  Weight: 57 kg

DRUGS (1)
  1. ERDAFITINIB [Suspect]
     Active Substance: ERDAFITINIB
     Indication: Neoplasm
     Dosage: ADDITIONAL BATCH/LOT NO. AAUI-10161?MED KIT NUMBER 556-2386, 997-3378
     Route: 048
     Dates: start: 20210514, end: 20210618

REACTIONS (1)
  - Calciphylaxis [Not Recovered/Not Resolved]

NARRATIVE: CASE EVENT DATE: 20210625
